FAERS Safety Report 5094951-5 (Version None)
Quarter: 2006Q3

REPORT INFORMATION
  Report Type: 
  Country: None (occurrence: None)
  Receive Date: 20060901
  Receipt Date: 20060822
  Transmission Date: 20061208
  Serious: Yes (Congenital Anomaly, Other)
  Sender: FDA-Public Use
  Company Number: DE-JNJFOC-20030800961

PATIENT

DRUGS (3)
  1. TOPAMAX [Suspect]
     Indication: DRUG EXPOSURE DURING PREGNANCY
     Dates: start: 20020101
  2. ERGENYL CHRONO [Suspect]
     Indication: DRUG EXPOSURE DURING PREGNANCY
     Route: 015
     Dates: start: 20000801, end: 20030519
  3. FOLIC ACID [Concomitant]
     Indication: DRUG EXPOSURE DURING PREGNANCY
     Route: 015

REACTIONS (9)
  - ABORTION INDUCED [None]
  - DRUG EXPOSURE DURING PREGNANCY [None]
  - HYDROCEPHALUS [None]
  - LIMB HYPOPLASIA CONGENITAL [None]
  - LIMB MALFORMATION [None]
  - MENINGOMYELOCELE [None]
  - NERVOUS SYSTEM DISORDER [None]
  - RADIAL TUNNEL SYNDROME [None]
  - SPINA BIFIDA [None]
